FAERS Safety Report 15315930 (Version 2)
Quarter: 2018Q3

REPORT INFORMATION
  Report Type: Spontaneous
  Country: FR (occurrence: FR)
  Receive Date: 20180824
  Receipt Date: 20180824
  Transmission Date: 20181010
  Serious: Yes (Other)
  Sender: FDA-Public Use
  Company Number: PHHY2018FR075842

PATIENT
  Age: 16 Year
  Sex: Female

DRUGS (4)
  1. TRETINOIN. [Suspect]
     Active Substance: TRETINOIN
     Indication: CASTLEMAN^S DISEASE
  2. TRETINOIN. [Suspect]
     Active Substance: TRETINOIN
     Indication: THROMBOTIC MICROANGIOPATHY
     Dosage: 60 MG, QD
     Route: 065
  3. PREDNISOLONE. [Suspect]
     Active Substance: PREDNISOLONE
     Indication: THROMBOTIC MICROANGIOPATHY
     Dosage: 0.25 MG/KG, QD
     Route: 048
  4. PREDNISOLONE. [Suspect]
     Active Substance: PREDNISOLONE
     Indication: CASTLEMAN^S DISEASE
     Dosage: 1 MG/KG, QD
     Route: 065

REACTIONS (5)
  - Intracranial pressure increased [Unknown]
  - Pulmonary embolism [Unknown]
  - Hyperkalaemia [Recovered/Resolved]
  - Device related infection [Unknown]
  - Product use in unapproved indication [Recovered/Resolved]
